FAERS Safety Report 5695708-4 (Version None)
Quarter: 2008Q2

REPORT INFORMATION
  Report Type: 
  Country: None (occurrence: None)
  Receive Date: 20080403
  Receipt Date: 20080327
  Transmission Date: 20081010
  Serious: Yes (Life-Threatening, Hospitalization)
  Sender: FDA-Public Use
  Company Number: 2008-174437-NL

PATIENT
  Age: 41 Year
  Sex: Female

DRUGS (1)
  1. ZEMURON [Suspect]
     Dosage: DF
     Dates: start: 20070615, end: 20070615

REACTIONS (5)
  - ANAPHYLACTIC REACTION [None]
  - ATRIAL FIBRILLATION [None]
  - CARDIO-RESPIRATORY ARREST [None]
  - HYPOTENSION [None]
  - VENTRICULAR FIBRILLATION [None]
